FAERS Safety Report 6710761-4 (Version None)
Quarter: 2010Q2

REPORT INFORMATION
  Report Type: 
  Country: None (occurrence: None)
  Receive Date: 20100504
  Receipt Date: 20100504
  Transmission Date: 20101027
  Serious: Yes (Other)
  Sender: FDA-Public Use
  Company Number: None

PATIENT
  Age: 8 Month
  Sex: Male
  Weight: 9.0719 kg

DRUGS (1)
  1. CHILDREN'S ZYRTEC ALLERGY [Suspect]
     Indication: HYPERSENSITIVITY
     Dosage: 1/2 TEASPOON 1 TIME DAILY PO 1 DOSE
     Route: 048
     Dates: start: 20100502, end: 20100502

REACTIONS (4)
  - AGITATION [None]
  - BODY TEMPERATURE INCREASED [None]
  - CRYING [None]
  - IRRITABILITY [None]
